FAERS Safety Report 7688593-2 (Version None)
Quarter: 2011Q3

REPORT INFORMATION
  Report Type: 
  Country: None (occurrence: None)
  Receive Date: 20110817
  Receipt Date: 20110810
  Transmission Date: 20111222
  Serious: Yes (Death, Hospitalization)
  Sender: FDA-Public Use
  Company Number: JP-BAYER-201014746BYL

PATIENT
  Age: 63 Year
  Sex: Male
  Weight: 66 kg

DRUGS (39)
  1. SORAFENIB (RAF KINASE INHIBITOR) [Suspect]
     Indication: HEPATIC NEOPLASM MALIGNANT
     Dosage: 400 MG, BID
     Route: 048
     Dates: start: 20100814, end: 20100827
  2. SORAFENIB (RAF KINASE INHIBITOR) [Suspect]
     Dosage: 400 MG, QD
     Dates: start: 20100925, end: 20101014
  3. SORAFENIB (RAF KINASE INHIBITOR) [Suspect]
     Dosage: 400 MG, QD
     Dates: start: 20110130, end: 20110220
  4. SORAFENIB (RAF KINASE INHIBITOR) [Suspect]
     Dosage: 400 MG, QD
     Dates: start: 20110221
  5. FAMOTIDINE [Concomitant]
     Indication: GASTRITIS
     Dosage: 20 MG, BID
     Route: 065
     Dates: start: 20080913, end: 20110307
  6. DICLOFENAC SODIUM [Concomitant]
     Indication: PYREXIA
     Dosage: 25 MG, PRN
     Dates: start: 20101025, end: 20101116
  7. SORAFENIB (RAF KINASE INHIBITOR) [Suspect]
     Dosage: 400 MG, QD
     Route: 048
     Dates: start: 20100906, end: 20100907
  8. OMEPRAZOLE [Concomitant]
     Indication: GASTRITIS PROPHYLAXIS
     Dosage: 20 MG, QD
     Dates: start: 20100907, end: 20100909
  9. SORAFENIB (RAF KINASE INHIBITOR) [Suspect]
     Dosage: 400 MG, QD
     Dates: start: 20110118, end: 20110129
  10. URSODIOL [Concomitant]
     Indication: PROPHYLAXIS
     Dosage: 200 MG, TID
     Route: 065
     Dates: start: 20060116, end: 20110307
  11. UREA [Concomitant]
     Indication: SKIN DISORDER
     Dosage: UNK UNK, QS
     Route: 061
     Dates: start: 20100814, end: 20110307
  12. NEUROBION [Concomitant]
     Indication: VITAMIN SUPPLEMENTATION
     Dosage: 1 DF, QD
     Dates: start: 20100908, end: 20100910
  13. BASEN [Concomitant]
     Indication: DIABETES MELLITUS
     Route: 048
     Dates: start: 20080913
  14. BASEN [Concomitant]
  15. AMINOLEBAN [Concomitant]
     Indication: HYPERAMMONAEMIA
     Dosage: 50 G, QD
     Route: 042
     Dates: start: 20080407, end: 20100924
  16. LACTULOSE [Concomitant]
     Indication: PYREXIA
  17. FAROPENEM [Concomitant]
     Indication: INFECTION
     Dosage: 200 MG, TID
     Dates: start: 20100911
  18. FALKAMIN [Concomitant]
     Indication: HYPOALBUMINAEMIA
     Dosage: 8.3 MG, UNK
     Dates: start: 20101108, end: 20110307
  19. SORAFENIB (RAF KINASE INHIBITOR) [Suspect]
     Dosage: 400 MG, QD
     Dates: start: 20101014, end: 20101124
  20. LACTULOSE [Concomitant]
     Indication: HEPATIC ENCEPHALOPATHY
     Dosage: 20 ML, TID
     Route: 048
     Dates: start: 20100908, end: 20100909
  21. VOGLIBOSE [Concomitant]
     Indication: DIABETES MELLITUS
     Dosage: 0.2 MG, BID
     Dates: start: 20080913, end: 20110307
  22. CEFTRIAXONE [Concomitant]
     Indication: INFECTION
     Dosage: 1 G, QD
     Dates: start: 20100907, end: 20100907
  23. FAMOTIDINE [Concomitant]
     Indication: GASTRITIS
     Dosage: 20 MG, QD
     Dates: start: 20100907, end: 20100909
  24. FAMOTIDINE [Concomitant]
     Indication: PROPHYLAXIS
  25. AMINOLEBAN [Concomitant]
     Indication: HEPATIC ENCEPHALOPATHY
     Dosage: 500 ML, QD
     Route: 042
     Dates: start: 20110109, end: 20110113
  26. FLURBIPROFEN [Concomitant]
     Indication: PYREXIA
     Dosage: 50 MG, QD
     Dates: start: 20100908, end: 20100910
  27. SHAKUYAKUKANZOUTOU [Concomitant]
     Dosage: 2.5 MG, TID
     Route: 048
     Dates: start: 20101218, end: 20110301
  28. GLUCOSE [Concomitant]
     Indication: HYPOGLYCAEMIA
  29. SORAFENIB (RAF KINASE INHIBITOR) [Suspect]
     Dosage: 400 MG, QD
     Dates: start: 20101125, end: 20101218
  30. SORAFENIB (RAF KINASE INHIBITOR) [Suspect]
     Dosage: 400 MG, QD
     Dates: start: 20110114, end: 20110117
  31. AMINOLEBAN [Concomitant]
     Indication: HYPOALBUMINAEMIA
     Dosage: 500 ML, QD
     Route: 042
     Dates: start: 20100907, end: 20100909
  32. UREA [Concomitant]
     Indication: PROPHYLAXIS
  33. LACTULOSE [Concomitant]
     Indication: HYPERAMMONAEMIA
  34. CEFTRIAXONE [Concomitant]
     Dosage: 1 G, BID
     Dates: start: 20100908, end: 20100910
  35. GLUCOSE [Concomitant]
     Indication: PROPHYLAXIS
     Dosage: 20 ML, QD
     Dates: start: 20100907, end: 20100909
  36. SORAFENIB (RAF KINASE INHIBITOR) [Suspect]
     Dosage: 400 MG, QD
     Dates: start: 20101219, end: 20110107
  37. LACTITOL [Concomitant]
     Indication: HYPERAMMONAEMIA
     Dosage: 6 MG, TID
     Route: 048
     Dates: start: 20060215, end: 20110307
  38. SHAKUYAKUKANZOUTOU [Concomitant]
     Indication: MUSCLE SPASMS
     Dosage: 2.5 MG, TID
     Route: 048
     Dates: start: 20101127, end: 20101210
  39. CEFTRIAXONE [Concomitant]
     Dosage: 1 G, QD
     Dates: start: 20101101, end: 20101101

REACTIONS (4)
  - PYREXIA [None]
  - HEPATIC ENCEPHALOPATHY [None]
  - INFECTIOUS PERITONITIS [None]
  - DEPRESSED LEVEL OF CONSCIOUSNESS [None]
